FAERS Safety Report 10013502 (Version 2)
Quarter: 2014Q1

REPORT INFORMATION
  Report Type: Spontaneous
  Country: US (occurrence: US)
  Receive Date: 20140314
  Receipt Date: 20140314
  Transmission Date: 20141002
  Serious: Yes (Other)
  Sender: FDA-Public Use
  Company Number: US-GE HEALTHCARE MEDICAL DIAGNOSTICS-OSCN-PR-0904S-0203

PATIENT
  Sex: Female
  Weight: 94.79 kg

DRUGS (2)
  1. OMNISCAN [Suspect]
     Indication: PRODUCT USED FOR UNKNOWN INDICATION
     Route: 042
     Dates: start: 20061012, end: 20061012
  2. OMNISCAN [Suspect]
     Route: 042
     Dates: start: 20070131, end: 20070131

REACTIONS (1)
  - Nephrogenic systemic fibrosis [Not Recovered/Not Resolved]
